FAERS Safety Report 7465504-6 (Version None)
Quarter: 2011Q2

REPORT INFORMATION
  Report Type: 
  Country: None (occurrence: None)
  Receive Date: 20110509
  Receipt Date: 20110429
  Transmission Date: 20111010
  Serious: Yes (Hospitalization, Other)
  Sender: FDA-Public Use
  Company Number: US-JNJFOC-20100901276

PATIENT
  Sex: Female

DRUGS (4)
  1. LEVAQUIN [Suspect]
     Indication: URINARY TRACT INFECTION
     Route: 065
  2. LEVAQUIN [Suspect]
     Indication: ILL-DEFINED DISORDER
     Route: 048
  3. PENICILLIN [Suspect]
     Indication: PRODUCT USED FOR UNKNOWN INDICATION
     Route: 065
  4. CIPROFLOXACIN HYDROCHLORIDE [Suspect]
     Indication: PRODUCT USED FOR UNKNOWN INDICATION
     Route: 065

REACTIONS (5)
  - STEVENS-JOHNSON SYNDROME [None]
  - COLITIS [None]
  - SCHIZOAFFECTIVE DISORDER [None]
  - STRESS [None]
  - RASH [None]
